FAERS Safety Report 24715417 (Version 1)
Quarter: 2024Q4

REPORT INFORMATION
  Report Type: Spontaneous
  Country: US (occurrence: US)
  Receive Date: 20241210
  Receipt Date: 20241210
  Transmission Date: 20250115
  Serious: Yes (Other)
  Sender: BRISTOL-MYERS SQUIBB COMPANY
  Company Number: US-BRISTOL-MYERS SQUIBB COMPANY-2024-190729

PATIENT
  Age: 80 Year
  Sex: Female
  Weight: 95.3 kg

DRUGS (1)
  1. ELIQUIS [Suspect]
     Active Substance: APIXABAN
     Indication: Product used for unknown indication
     Dosage: TAKE 1 TABLET (5 MG) BY MOUTH IN THE MORNING AND AT BEDTIME. INSTRUCTED TO HOLDX2 DAYS PRIOR SURGERY
     Route: 048
     Dates: start: 20211202

REACTIONS (2)
  - Cardiac amyloidosis [Unknown]
  - Cardiac failure chronic [Unknown]
